FAERS Safety Report 25113045 (Version 3)
Quarter: 2025Q4

REPORT INFORMATION
  Report Type: Spontaneous
  Country: US (occurrence: None)
  Receive Date: 20250324
  Receipt Date: 20251103
  Transmission Date: 20260118
  Serious: No
  Sender: UCB
  Company Number: US-UCBSA-2025001143

PATIENT
  Age: 62 Year

DRUGS (1)
  1. BIMZELX [Suspect]
     Active Substance: BIMEKIZUMAB-BKZX
     Indication: Psoriatic arthropathy
     Dosage: 160 MILLIGRAM, EV 4 WEEKS

REACTIONS (11)
  - Psoriasis [Unknown]
  - Sinusitis [Unknown]
  - Nasal congestion [Unknown]
  - Swelling [Unknown]
  - Pruritus [Unknown]
  - Nasopharyngitis [Unknown]
  - Influenza [Unknown]
  - Cough [Unknown]
  - Oral herpes [Unknown]
  - Ear discomfort [Unknown]
  - Application site reaction [Unknown]
